FAERS Safety Report 4731707-4 (Version None)
Quarter: 2005Q3

REPORT INFORMATION
  Report Type: 
  Country: None (occurrence: None)
  Receive Date: 20050802
  Receipt Date: 20050802
  Transmission Date: 20060218
  Serious: Yes (Death)
  Sender: FDA-Public Use
  Company Number: None

PATIENT
  Age: 63 Year
  Sex: Female
  Weight: 62.9 kg

DRUGS (6)
  1. PEMETREXED, ELI LILY [Suspect]
     Indication: NON-SMALL CELL LUNG CANCER
     Dosage: 500 MG /M2 IV Q 21 D
     Route: 042
     Dates: start: 20050623, end: 20050713
  2. CISPLATIN [Suspect]
     Dosage: 75 MG/M2 Q 21D IV
     Route: 042
  3. FOLIC ACID [Concomitant]
  4. XANAX [Concomitant]
  5. NEXIUM [Concomitant]
  6. ATIVAN [Concomitant]

REACTIONS (4)
  - DEPRESSED LEVEL OF CONSCIOUSNESS [None]
  - DYSPEPSIA [None]
  - MYOCARDIAL INFARCTION [None]
  - PULMONARY EMBOLISM [None]
